FAERS Safety Report 18946918 (Version 3)
Quarter: 2021Q2

REPORT INFORMATION
  Report Type: Spontaneous
  Country: US (occurrence: US)
  Receive Date: 20210226
  Receipt Date: 20210423
  Transmission Date: 20210717
  Serious: Yes (Hospitalization)
  Sender: FDA-Public Use
  Company Number: US-ROCHE-2686337

PATIENT
  Age: 58 Year
  Sex: Male

DRUGS (4)
  1. XELODA [Suspect]
     Active Substance: CAPECITABINE
     Route: 048
     Dates: start: 202008
  2. XELODA [Suspect]
     Active Substance: CAPECITABINE
     Route: 048
     Dates: start: 202010
  3. XELODA [Suspect]
     Active Substance: CAPECITABINE
     Route: 048
     Dates: start: 202012
  4. XELODA [Suspect]
     Active Substance: CAPECITABINE
     Indication: LUNG NEOPLASM MALIGNANT
     Route: 048
     Dates: start: 202008

REACTIONS (10)
  - Nausea [Unknown]
  - Diarrhoea [Unknown]
  - Palmar-plantar erythrodysaesthesia syndrome [Unknown]
  - Dyspnoea [Unknown]
  - Vomiting [Unknown]
  - Pulmonary oedema [Unknown]
  - COVID-19 [Unknown]
  - Fatigue [Unknown]
  - Off label use [Unknown]
  - Diplopia [Unknown]

NARRATIVE: CASE EVENT DATE: 20200820
